FAERS Safety Report 11940331 (Version 1)
Quarter: 2016Q1

REPORT INFORMATION
  Report Type: Spontaneous
  Country: US (occurrence: US)
  Receive Date: 20160122
  Receipt Date: 20160122
  Transmission Date: 20160526
  Serious: Yes (Hospitalization)
  Sender: FDA-Public Use
  Company Number: US-ALEXION PHARMACEUTICALS INC-A201600278

PATIENT
  Sex: Female

DRUGS (1)
  1. SOLIRIS [Suspect]
     Active Substance: ECULIZUMAB
     Indication: HAEMOLYTIC URAEMIC SYNDROME
     Dosage: 300 MG, UNK
     Route: 042

REACTIONS (4)
  - Blood lactate dehydrogenase increased [Recovered/Resolved]
  - Haemoglobin decreased [Unknown]
  - Gastroenteritis viral [Unknown]
  - Dehydration [Unknown]

NARRATIVE: CASE EVENT DATE: 201512
